FAERS Safety Report 7214123-5 (Version None)
Quarter: 2011Q1

REPORT INFORMATION
  Report Type: 
  Country: None (occurrence: None)
  Receive Date: 20110107
  Receipt Date: 20101223
  Transmission Date: 20110831
  Serious: Yes (Other)
  Sender: FDA-Public Use
  Company Number: US-CELGENEUS-163-21880-08100397

PATIENT

DRUGS (1)
  1. REVLIMID [Suspect]
     Route: 048
     Dates: start: 20051128, end: 20060811

REACTIONS (2)
  - LYMPHOPENIA [None]
  - NEUTROPHIL COUNT DECREASED [None]
